FAERS Safety Report 6544430-0 (Version None)
Quarter: 2010Q1

REPORT INFORMATION
  Report Type: 
  Country: None (occurrence: None)
  Receive Date: 20100120
  Receipt Date: 20100120
  Transmission Date: 20100710
  Serious: Yes (Life-Threatening)
  Sender: FDA-Public Use
  Company Number: None

PATIENT
  Sex: Female
  Weight: 40 kg

DRUGS (2)
  1. ETRAVIRINE 200MG TIBOTEC [Suspect]
     Indication: ANTIRETROVIRAL THERAPY
     Dosage: 200 MG BID ORAL
     Route: 048
     Dates: start: 20091123, end: 20091223
  2. ETRAVIRINE 200MG TIBOTEC [Suspect]
     Indication: HIV INFECTION
     Dosage: 200 MG BID ORAL
     Route: 048
     Dates: start: 20091123, end: 20091223

REACTIONS (2)
  - LICHEN PLANUS [None]
  - LICHENOID KERATOSIS [None]
